FAERS Safety Report 25489815 (Version 2)
Quarter: 2025Q4

REPORT INFORMATION
  Report Type: Report from Study
  Country: US (occurrence: US)
  Receive Date: 20250627
  Receipt Date: 20251218
  Transmission Date: 20260117
  Serious: Yes (Hospitalization, Other)
  Sender: TAKEDA
  Company Number: US-TAKEDA-US201925425

PATIENT
  Sex: Female

DRUGS (2)
  1. HUMAN IMMUNOGLOBULIN G [Suspect]
     Active Substance: HUMAN IMMUNOGLOBULIN G
     Indication: Primary immunodeficiency syndrome
     Dosage: UNK UNK, Q4WEEKS
  2. HUMAN IMMUNOGLOBULIN G [Suspect]
     Active Substance: HUMAN IMMUNOGLOBULIN G
     Indication: Immunodeficiency common variable
     Dosage: UNK

REACTIONS (18)
  - Oropharyngeal pain [Unknown]
  - Migraine [Unknown]
  - Type 2 diabetes mellitus [Unknown]
  - Hordeolum [Unknown]
  - Incorrect drug administration rate [Unknown]
  - Palpitations [Unknown]
  - Muscle spasms [Unknown]
  - Headache [Unknown]
  - Fatigue [Unknown]
  - Nausea [Unknown]
  - COVID-19 [Unknown]
  - Insurance issue [Unknown]
  - Product dose omission issue [Unknown]
  - Depressed mood [Unknown]
  - Infusion related reaction [Unknown]
  - Dizziness [Unknown]
  - Post procedural complication [Unknown]
  - Dyspnoea [Unknown]

NARRATIVE: CASE EVENT DATE: 20250625
